FAERS Safety Report 8880656 (Version 2)
Quarter: 2013Q1

REPORT INFORMATION
  Report Type: Spontaneous
  Country: US (occurrence: US)
  Receive Date: 20121101
  Receipt Date: 20130213
  Transmission Date: 20140127
  Serious: Yes (Other)
  Sender: FDA-Public Use
  Company Number: US-PAR PHARMACEUTICAL, INC-2012SCPR004681

PATIENT
  Sex: 0

DRUGS (2)
  1. TRAMADOL AND ACETAMINOPHEN [Suspect]
     Indication: CHEST PAIN
     Dosage: ONE TABLET TWICE A DAY
     Route: 048
     Dates: start: 2004
  2. SKELAXIN [Concomitant]
     Indication: MUSCLE RELAXANT THERAPY
     Dosage: 1 TABLET ONCE A DAY
     Route: 048
     Dates: start: 2002

REACTIONS (1)
  - Coeliac disease [Unknown]
